FAERS Safety Report 13056913 (Version 5)
Quarter: 2018Q3

REPORT INFORMATION
  Report Type: Spontaneous
  Country: US (occurrence: US)
  Receive Date: 20161222
  Receipt Date: 20180918
  Transmission Date: 20181010
  Serious: Yes (Other)
  Sender: FDA-Public Use
  Company Number: US-BIOMARINAP-US-2016-111317

PATIENT
  Age: 21 Year
  Sex: Female

DRUGS (2)
  1. TYLENOL [Concomitant]
     Active Substance: ACETAMINOPHEN
     Indication: PREMEDICATION
  2. ALDURAZYME [Suspect]
     Active Substance: LARONIDASE
     Indication: MUCOPOLYSACCHARIDOSIS I
     Dosage: 43.5 MG, UNK
     Route: 041
     Dates: start: 20090416

REACTIONS (9)
  - Decreased appetite [Not Recovered/Not Resolved]
  - Ear infection [Recovering/Resolving]
  - Thyroid cyst [Not Recovered/Not Resolved]
  - Infection [Recovering/Resolving]
  - Pruritus [Not Recovered/Not Resolved]
  - Epistaxis [Recovering/Resolving]
  - Rash [Not Recovered/Not Resolved]
  - Fatigue [Recovering/Resolving]
  - Abdominal pain [Not Recovered/Not Resolved]

NARRATIVE: CASE EVENT DATE: 20160923
